FAERS Safety Report 16963767 (Version 4)
Quarter: 2020Q1

REPORT INFORMATION
  Report Type: Report from Study
  Country: None (occurrence: CO)
  Receive Date: 20191025
  Receipt Date: 20200318
  Transmission Date: 20200409
  Serious: Yes (Other)
  Sender: FDA-Public Use
  Company Number: CO-ABBVIE-19K-036-2979451-00

PATIENT
  Age: 38 Year
  Sex: Female
  Weight: 59 kg

DRUGS (2)
  1. HUMIRA [Suspect]
     Active Substance: ADALIMUMAB
     Indication: RHEUMATOID ARTHRITIS
     Route: 058
     Dates: start: 20170427
  2. HUMIRA [Suspect]
     Active Substance: ADALIMUMAB
     Indication: RHEUMATOID ARTHRITIS
     Route: 058
     Dates: end: 20190927

REACTIONS (7)
  - Treatment noncompliance [Unknown]
  - Loss of personal independence in daily activities [Unknown]
  - Rheumatoid arthritis [Not Recovered/Not Resolved]
  - Gait disturbance [Unknown]
  - Headache [Not Recovered/Not Resolved]
  - Uveitis [Not Recovered/Not Resolved]
  - Peripheral swelling [Not Recovered/Not Resolved]

NARRATIVE: CASE EVENT DATE: 2018
